FAERS Safety Report 14547052 (Version 6)
Quarter: 2018Q2

REPORT INFORMATION
  Report Type: Spontaneous
  Country: US (occurrence: US)
  Receive Date: 20180219
  Receipt Date: 20180628
  Transmission Date: 20180711
  Serious: Yes (Other)
  Sender: FDA-Public Use
  Company Number: US-PFIZER INC-2018069129

PATIENT
  Age: 62 Year
  Sex: Male
  Weight: 95 kg

DRUGS (5)
  1. METHOTREXATE. [Concomitant]
     Active Substance: METHOTREXATE
     Indication: RHEUMATOID ARTHRITIS
     Dosage: 1 ML, WEEKLY(1 ML,1 IN 1 WK)
     Dates: start: 201505, end: 201710
  2. XELJANZ XR [Suspect]
     Active Substance: TOFACITINIB CITRATE
     Dosage: 40 MG, 1X/DAY
     Route: 048
     Dates: start: 2017, end: 2017
  3. XELJANZ XR [Suspect]
     Active Substance: TOFACITINIB CITRATE
     Dosage: 11 MG, UNK
     Route: 065
     Dates: start: 2018, end: 2018
  4. METHOTREXATE. [Concomitant]
     Active Substance: METHOTREXATE
     Indication: PROSTATOMEGALY
     Dosage: 1 ML, WEEKLY (100UNITS)(1 ML,1 IN 1 WK)
     Dates: start: 2018
  5. XELJANZ XR [Suspect]
     Active Substance: TOFACITINIB CITRATE
     Indication: RHEUMATOID ARTHRITIS
     Dosage: 11 MG, 1X/DAY (ONCE)
     Dates: start: 2017, end: 2017

REACTIONS (10)
  - Weight decreased [Unknown]
  - Wound [Recovering/Resolving]
  - Oral mucosal blistering [Recovering/Resolving]
  - Hypophagia [Unknown]
  - Aphthous ulcer [Unknown]
  - Tongue blistering [Recovering/Resolving]
  - Pain [Recovering/Resolving]
  - Fluid intake reduced [Unknown]
  - Overdose [Unknown]
  - Tongue discomfort [Recovering/Resolving]

NARRATIVE: CASE EVENT DATE: 2017
